FAERS Safety Report 5690116-4 (Version None)
Quarter: 2008Q1

REPORT INFORMATION
  Report Type: 
  Country: None (occurrence: None)
  Receive Date: 20080331
  Receipt Date: 20080331
  Transmission Date: 20080703
  Serious: Yes (Other)
  Sender: FDA-Public Use
  Company Number: None

PATIENT
  Sex: Female
  Weight: 92.9874 kg

DRUGS (5)
  1. PAXIL [Suspect]
     Indication: CONDITION AGGRAVATED
     Dosage: I DON'T REMEMBER
     Dates: start: 20010201, end: 20030215
  2. PAXIL [Suspect]
     Indication: PREMENSTRUAL SYNDROME
     Dosage: I DON'T REMEMBER
     Dates: start: 20010201, end: 20030215
  3. SINGULAIR [Suspect]
     Indication: MULTIPLE ALLERGIES
     Dosage: I AM NOT SURE
     Dates: start: 20080125, end: 20080315
  4. TYLENOL [Concomitant]
  5. VICKS NYQUIL [Concomitant]

REACTIONS (25)
  - ABNORMAL BEHAVIOUR [None]
  - AFFECTIVE DISORDER [None]
  - AMNESIA [None]
  - ANXIETY [None]
  - BALANCE DISORDER [None]
  - CONDITION AGGRAVATED [None]
  - CONVULSION [None]
  - DEMENTIA [None]
  - DEMENTIA ALZHEIMER'S TYPE [None]
  - DEPRESSION [None]
  - DISTURBANCE IN ATTENTION [None]
  - DRUG INEFFECTIVE [None]
  - EMOTIONAL DISORDER [None]
  - FALL [None]
  - FEELING ABNORMAL [None]
  - HALLUCINATION, AUDITORY [None]
  - ILL-DEFINED DISORDER [None]
  - JUDGEMENT IMPAIRED [None]
  - LIVER DISORDER [None]
  - MENTAL DISORDER [None]
  - MULTIPLE ALLERGIES [None]
  - PREMENSTRUAL SYNDROME [None]
  - SLEEP DISORDER [None]
  - SPEECH DISORDER [None]
  - THINKING ABNORMAL [None]
